FAERS Safety Report 8833797 (Version 2)
Quarter: 2012Q4

REPORT INFORMATION
  Report Type: 
  Country: US (occurrence: US)
  Receive Date: 20121011
  Receipt Date: 20121219
  Transmission Date: 20130627
  Serious: Yes (Hospitalization, Other)
  Sender: FDA-Public Use
  Company Number: US-BAYER-2012-104034

PATIENT
  Age: 41 Year
  Sex: Female
  Weight: 152 kg

DRUGS (2)
  1. MIRENA [Suspect]
     Indication: CONTRACEPTION
     Dosage: 20 mcg/24hr, CONT
     Route: 015
     Dates: start: 20111229
  2. LOSARTAN [Concomitant]

REACTIONS (8)
  - Myocardial infarction [None]
  - Heart injury [None]
  - Cardiac failure [None]
  - Blood pressure increased [None]
  - Genital haemorrhage [None]
  - Amenorrhoea [None]
  - Menstrual disorder [None]
  - Myocardial infarction [Recovering/Resolving]
